FAERS Safety Report 7785564-2 (Version None)
Quarter: 2011Q3

REPORT INFORMATION
  Report Type: 
  Country: None (occurrence: None)
  Receive Date: 20110929
  Receipt Date: 20110915
  Transmission Date: 20111222
  Serious: Yes (Hospitalization)
  Sender: FDA-Public Use
  Company Number: JP-JNJFOC-20110908305

PATIENT
  Age: 34 Year
  Sex: Female

DRUGS (1)
  1. RISPERDAL [Suspect]
     Indication: BIPOLAR I DISORDER
     Route: 048

REACTIONS (3)
  - FATIGUE [None]
  - DYSPHAGIA [None]
  - IMPAIRED WORK ABILITY [None]
